FAERS Safety Report 4374515-9 (Version None)
Quarter: 2004Q2

REPORT INFORMATION
  Report Type: 
  Country: None (occurrence: None)
  Receive Date: 20040604
  Receipt Date: 20040524
  Transmission Date: 20050107
  Serious: Yes (Hospitalization)
  Sender: FDA-Public Use
  Company Number: US-JNJFOC-20040505667

PATIENT
  Age: 46 Year
  Sex: Male

DRUGS (1)
  1. DURAGESIC [Suspect]
     Indication: PAIN
     Dosage: 100 UG/HR, 1 IN 72 HOUR, TRANSDERMAL
     Route: 062
     Dates: start: 20040515, end: 20040516

REACTIONS (6)
  - CARDIAC ARREST [None]
  - COMA [None]
  - DRUG SCREEN POSITIVE [None]
  - PHARMACEUTICAL PRODUCT COMPLAINT [None]
  - RESPIRATORY DEPRESSION [None]
  - SOMNOLENCE [None]
